FAERS Safety Report 6676388-8 (Version None)
Quarter: 2010Q2

REPORT INFORMATION
  Report Type: 
  Country: None (occurrence: None)
  Receive Date: 20100412
  Receipt Date: 20100329
  Transmission Date: 20101027
  Serious: Yes (Other)
  Sender: FDA-Public Use
  Company Number: PHHY2010CA19517

PATIENT

DRUGS (5)
  1. ALISKIREN ALI+ [Suspect]
     Dosage: 150 MG DAILY
  2. CALCIUM CHANNEL BLOCKERS [Concomitant]
  3. DIURETICS [Concomitant]
  4. ANGIOTENSIN CONVERTING ENZYME BLOCKERS [Concomitant]
  5. BETA BLOCKING AGENTS [Concomitant]

REACTIONS (1)
  - URINE ALBUMIN/CREATININE RATIO INCREASED [None]
